FAERS Safety Report 11875820 (Version 4)
Quarter: 2016Q1

REPORT INFORMATION
  Report Type: Spontaneous
  Country: JP (occurrence: JP)
  Receive Date: 20151229
  Receipt Date: 20160121
  Transmission Date: 20160526
  Serious: Yes (Hospitalization)
  Sender: FDA-Public Use
  Company Number: PHJP2015JP023707

PATIENT
  Age: 42 Year
  Sex: Female

DRUGS (1)
  1. TEGRETOL [Suspect]
     Active Substance: CARBAMAZEPINE
     Indication: TRIGEMINAL NEURALGIA
     Dosage: 200 MG, QD
     Route: 048
     Dates: end: 20141226

REACTIONS (8)
  - Pyrexia [Unknown]
  - Generalised erythema [Unknown]
  - Acute hepatic failure [Recovering/Resolving]
  - Human herpes virus 6 serology positive [Unknown]
  - Purpura [Recovering/Resolving]
  - Rash papular [Recovering/Resolving]
  - Lymphadenopathy [Unknown]
  - Drug reaction with eosinophilia and systemic symptoms [Recovering/Resolving]

NARRATIVE: CASE EVENT DATE: 20141222
